FAERS Safety Report 22042423 (Version 1)
Quarter: 2023Q1

REPORT INFORMATION
  Report Type: Spontaneous
  Country: JP (occurrence: JP)
  Receive Date: 20230228
  Receipt Date: 20230228
  Transmission Date: 20230418
  Serious: Yes (Other)
  Sender: FDA-Public Use
  Company Number: JP-SAKK-01501941

PATIENT

DRUGS (2)
  1. RASBURICASE [Suspect]
     Active Substance: RASBURICASE
     Indication: Product used for unknown indication
     Dosage: UNK, QOD
     Route: 041
     Dates: start: 20230215
  2. TRI B [HYDROXOCOBALAMIN ACETATE;PYRIDOXINE HYDROCHLORIDE;THIAMINE DISU [Concomitant]
     Indication: Product used for unknown indication
     Route: 065

REACTIONS (3)
  - Tumour lysis syndrome [Unknown]
  - Blood uric acid increased [Unknown]
  - Product use issue [Unknown]

NARRATIVE: CASE EVENT DATE: 20230201
